FAERS Safety Report 9163575 (Version 1)
Quarter: 2013Q1

REPORT INFORMATION
  Report Type: Spontaneous
  Country: IT (occurrence: None)
  Receive Date: 20130221
  Receipt Date: 20130221
  Transmission Date: 20140127
  Serious: Yes (Hospitalization)
  Sender: FDA-Public Use
  Company Number: SYM-2013-00459

PATIENT
  Age: 93 Year
  Sex: Female

DRUGS (4)
  1. ENAPREN [Suspect]
     Indication: PRODUCT USED FOR UNKNOWN INDICATION
     Route: 048
     Dates: start: 20111121
  2. LORAZEPAM [Suspect]
     Indication: PRODUCT USED FOR UNKNOWN INDICATION
     Route: 048
     Dates: start: 20111121
  3. NEBILOX [Suspect]
     Indication: PRODUCT USED FOR UNKNOWN INDICATION
     Dates: start: 20111121
  4. TICLOPIDINE (TICLOPIDINE) (UNKNOWN) (TICLOPIDINE) [Concomitant]

REACTIONS (1)
  - Syncope [None]
